FAERS Safety Report 5018115-6 (Version None)
Quarter: 2006Q2

REPORT INFORMATION
  Report Type: 
  Country: None (occurrence: None)
  Receive Date: 20060530
  Receipt Date: 20060516
  Transmission Date: 20061013
  Serious: Yes (Other)
  Sender: FDA-Public Use
  Company Number: 2006046517

PATIENT
  Age: 54 Year
  Sex: Male
  Weight: 149.687 kg

DRUGS (15)
  1. VIAGRA [Suspect]
     Indication: ERECTILE DYSFUNCTION
     Dosage: (25 MG)
     Dates: start: 20010101, end: 20010101
  2. MS CONTIN [Concomitant]
  3. ISOSORBIDE (ISOSORBIDE) [Concomitant]
  4. NORVASC [Concomitant]
  5. CITALOPRAM HYDROBROMIDE [Concomitant]
  6. FUROSEMIDE [Concomitant]
  7. TERAZOSIN (TERAZOSIN) [Concomitant]
  8. PROTONIX [Concomitant]
  9. POTASSIUM (POTASSIUM) [Concomitant]
  10. TOPROL-XL [Concomitant]
  11. ASPIRIN [Concomitant]
  12. AMITRIPTYLINE HCL [Concomitant]
  13. INSULIN [Concomitant]
  14. ANDROGEL [Concomitant]
  15. AMBIEN [Concomitant]

REACTIONS (4)
  - DIABETIC COMPLICATION [None]
  - DRUG INEFFECTIVE [None]
  - LEG AMPUTATION [None]
  - SKIN LESION [None]
